FAERS Safety Report 5450327-X (Version None)
Quarter: 2007Q3

REPORT INFORMATION
  Report Type: 
  Country: None (occurrence: None)
  Receive Date: 20070912
  Receipt Date: 20070904
  Transmission Date: 20080115
  Serious: Yes (Hospitalization)
  Sender: FDA-Public Use
  Company Number: US-AMGEN-US240323

PATIENT
  Sex: Female
  Weight: 55.4 kg

DRUGS (9)
  1. ENBREL [Suspect]
     Indication: RHEUMATOID ARTHRITIS
     Route: 058
     Dates: start: 20070508
  2. PREDNISONE [Suspect]
     Route: 065
     Dates: start: 19940101
  3. METHOTREXATE [Concomitant]
     Route: 048
  4. NEXIUM [Concomitant]
     Route: 065
  5. LEXAPRO [Concomitant]
     Route: 065
  6. LIPITOR [Concomitant]
     Route: 065
  7. RITALIN [Concomitant]
     Route: 065
  8. THEOPHYLLINE [Concomitant]
     Route: 065
  9. ACTONEL [Concomitant]
     Route: 065

REACTIONS (1)
  - AORTIC DISSECTION [None]
